FAERS Safety Report 7928624-5 (Version None)
Quarter: 2011Q4

REPORT INFORMATION
  Report Type: 
  Country: None (occurrence: None)
  Receive Date: 20111118
  Receipt Date: 20111109
  Transmission Date: 20120403
  Serious: Yes (Hospitalization)
  Sender: FDA-Public Use
  Company Number: AT-MPIJNJ-2011-04806

PATIENT

DRUGS (3)
  1. RIBOMUSTIN [Suspect]
     Indication: MULTIPLE MYELOMA
     Dosage: 112 MG, CYCLIC
     Route: 042
     Dates: start: 20110913, end: 20111024
  2. VELCADE [Suspect]
     Indication: MULTIPLE MYELOMA
     Dosage: 2.08 MG, CYCLIC
     Route: 042
     Dates: start: 20110913, end: 20111027
  3. DEXAMETHASONE [Suspect]
     Indication: MULTIPLE MYELOMA
     Dosage: 20 MG, CYCLIC
     Route: 048
     Dates: start: 20110913, end: 20111027

REACTIONS (2)
  - PNEUMONIA [None]
  - STASIS DERMATITIS [None]
